FAERS Safety Report 4344909-6 (Version None)
Quarter: 2004Q2

REPORT INFORMATION
  Report Type: 
  Country: None (occurrence: None)
  Receive Date: 20040420
  Receipt Date: 20040407
  Transmission Date: 20050107
  Serious: Yes (Hospitalization)
  Sender: FDA-Public Use
  Company Number: 2004023477

PATIENT
  Age: 70 Year
  Sex: Male

DRUGS (2)
  1. ATARAX [Suspect]
     Indication: INSOMNIA
     Dosage: 25 MG (DAILY), ORAL
     Route: 048
     Dates: start: 20040211, end: 20040212
  2. NADROPARIN CALCIUM (ADROPARIN CALCIUM) [Suspect]
     Indication: ILL-DEFINED DISORDER
     Dosage: ONE DOSE (DAILY), SUBCUTANEOUS
     Route: 058
     Dates: start: 20040209, end: 20040212

REACTIONS (8)
  - BLOOD IMMUNOGLOBULIN E INCREASED [None]
  - BODY TEMPERATURE INCREASED [None]
  - EPISTAXIS [None]
  - HAEMOPTYSIS [None]
  - INFLAMMATION [None]
  - INSOMNIA [None]
  - OXYGEN SATURATION DECREASED [None]
  - RASH MACULAR [None]
